FAERS Safety Report 16314472 (Version 1)
Quarter: 2019Q2

REPORT INFORMATION
  Report Type: Spontaneous
  Country: US (occurrence: US)
  Receive Date: 20190409
  Receipt Date: 20190409
  Transmission Date: 20190711
  Serious: No
  Sender: FDA-Public Use
  Company Number: None

PATIENT
  Age: 18 Year
  Sex: Female

DRUGS (1)
  1. GLATIRAMER 40MG PFS INJ (12/BOX) [Suspect]
     Active Substance: GLATIRAMER
     Indication: MULTIPLE SCLEROSIS
     Dates: start: 201803

REACTIONS (4)
  - Manufacturing product shipping issue [None]
  - Pain in extremity [None]
  - Arthralgia [None]
  - Product dose omission [None]

NARRATIVE: CASE EVENT DATE: 20190409
